FAERS Safety Report 15107391 (Version 1)
Quarter: 2018Q3

REPORT INFORMATION
  Report Type: Report from Study
  Country: IT (occurrence: IT)
  Receive Date: 20180704
  Receipt Date: 20180704
  Transmission Date: 20181010
  Serious: Yes (Other)
  Sender: FDA-Public Use
  Company Number: IT-PFIZER INC-2018267574

PATIENT
  Age: 80 Year
  Sex: Female

DRUGS (10)
  1. COVERLAM [Concomitant]
     Active Substance: AMLODIPINE BESYLATE\PERINDOPRIL ARGININE
     Dosage: UNK
  2. LANSOX [Concomitant]
     Active Substance: LANSOPRAZOLE
     Dosage: UNK
  3. MEDROL [Suspect]
     Active Substance: METHYLPREDNISOLONE
     Indication: PNEUMONIA
     Dosage: 1 DF, 1X/DAY
     Route: 048
     Dates: start: 20180421, end: 20180423
  4. TACHIPIRINA [Suspect]
     Active Substance: ACETAMINOPHEN
     Indication: PNEUMONIA
     Dosage: 1 DF, AS NEEDED
     Route: 048
     Dates: start: 20180421, end: 20180423
  5. FLEIDERINA [Concomitant]
     Dosage: UNK
  6. BRONCOVALEAS /00139501/ [Suspect]
     Active Substance: ALBUTEROL
     Indication: PNEUMONIA
     Dosage: 8 GTT, SINGLE
     Route: 055
     Dates: start: 20180423, end: 20180423
  7. FOSTER /00500401/ [Concomitant]
     Active Substance: PIROXICAM
     Dosage: UNK
  8. AUGMENTIN [Suspect]
     Active Substance: AMOXICILLIN\CLAVULANATE POTASSIUM
     Indication: PNEUMONIA
     Dosage: 2 DF, 1X/DAY
     Route: 048
     Dates: start: 20180421, end: 20180423
  9. CLENIL /00212602/ [Suspect]
     Active Substance: BECLOMETHASONE DIPROPIONATE
     Indication: PNEUMONIA
     Dosage: 1 DF, SINGLE
     Route: 055
     Dates: start: 20180423, end: 20180423
  10. CARDIRENE [Concomitant]
     Active Substance: ASPIRIN DL-LYSINE
     Dosage: UNK

REACTIONS (4)
  - Hypotension [Recovering/Resolving]
  - Dehydration [Recovering/Resolving]
  - Syncope [Recovering/Resolving]
  - Hyperhidrosis [Recovering/Resolving]

NARRATIVE: CASE EVENT DATE: 20180423
